FAERS Safety Report 9490780 (Version 1)
Quarter: 2013Q3

REPORT INFORMATION
  Report Type: Spontaneous
  Country: US (occurrence: US)
  Receive Date: 20130830
  Receipt Date: 20130830
  Transmission Date: 20140515
  Serious: No
  Sender: FDA-Public Use
  Company Number: US-BAYER-2013-104209

PATIENT
  Sex: Female
  Weight: 48 kg

DRUGS (7)
  1. ALEVE CAPLET [Suspect]
     Indication: RESTLESS LEGS SYNDROME
     Dosage: 1 DF, PRN
     Route: 048
  2. ALEVE CAPLET [Suspect]
     Indication: OSTEOPENIA
  3. COD LIVER OIL [Concomitant]
     Indication: IMMUNE SYSTEM DISORDER
     Dosage: 1 DF, QOD
     Dates: start: 1991
  4. VITAMIN D [Concomitant]
     Indication: IMMUNE SYSTEM DISORDER
     Dosage: UNK
     Dates: start: 1991
  5. GERITOL [VITAMINS NOS] [Concomitant]
     Indication: ENERGY INCREASED
     Dosage: UNK TBSP,BIW
  6. GLUCOSAMINE SULFATE [Concomitant]
     Indication: CHONDROPATHY
     Dosage: 500 MG, QD
     Dates: start: 1991
  7. VITAMIN C [Concomitant]
     Dosage: 500 MG, UNK
     Dates: start: 1991

REACTIONS (5)
  - Asthenia [Recovered/Resolved]
  - Abdominal pain upper [Recovered/Resolved]
  - Abdominal distension [Recovered/Resolved]
  - Fatigue [Recovered/Resolved]
  - Off label use [None]
